FAERS Safety Report 5758088-1 (Version None)
Quarter: 2008Q2

REPORT INFORMATION
  Report Type: 
  Country: None (occurrence: None)
  Receive Date: 20080602
  Receipt Date: 20080602
  Transmission Date: 20081010
  Serious: Yes (Death)
  Sender: FDA-Public Use
  Company Number: None

PATIENT
  Age: 71 Year
  Sex: Female

DRUGS (12)
  1. VITAMIN D [Suspect]
     Indication: OSTEOPOROSIS PROPHYLAXIS
     Dosage: 880 IU/ D
  2. FENPROCOUMON RATIOPHARM [Suspect]
  3. METHYLPREDNISOLONE [Suspect]
     Indication: TEMPORAL ARTERITIS
     Dosage: 32 MG/ D
  4. METHYLPREDNISOLONE [Suspect]
     Indication: TEMPORAL ARTERITIS
     Dosage: 24 MG/ D
  5. METHYLPREDNISOLONE [Suspect]
     Indication: TEMPORAL ARTERITIS
     Dosage: 16 MG/ D
  6. METHYLPREDNISOLONE [Suspect]
     Indication: TEMPORAL ARTERITIS
     Dosage: 12 MG /D
  7. METHYLPREDNISOLONE [Suspect]
     Indication: TEMPORAL ARTERITIS
     Dosage: 10 MG /D
  8. METHYLPREDNISOLONE [Suspect]
     Indication: TEMPORAL ARTERITIS
     Dosage: 4 MG /D
  9. CALCIUM SUPPLEMENTS [Suspect]
     Indication: OSTEOPOROSIS PROPHYLAXIS
     Dosage: 1000 MG/ D
  10. DIGOXIN [Concomitant]
  11. BISOPROLOL FUMARATE [Concomitant]
  12. ENALAPRIL MALEATE [Concomitant]

REACTIONS (13)
  - BLOOD UREA INCREASED [None]
  - CALCIPHYLAXIS [None]
  - CANDIDA SEPSIS [None]
  - DIARRHOEA [None]
  - GENERAL PHYSICAL HEALTH DETERIORATION [None]
  - IMPAIRED HEALING [None]
  - LIVEDO RETICULARIS [None]
  - RENAL CYST [None]
  - SKIN NECROSIS [None]
  - SKIN ULCER [None]
  - TEMPORAL ARTERITIS [None]
  - VASCULAR CALCIFICATION [None]
  - WHITE BLOOD CELL COUNT INCREASED [None]
